FAERS Safety Report 9773871 (Version 3)
Quarter: 2014Q2

REPORT INFORMATION
  Report Type: Report from Study
  Country: CA (occurrence: CA)
  Receive Date: 20131220
  Receipt Date: 20140414
  Transmission Date: 20141212
  Serious: Yes (Other)
  Sender: FDA-Public Use
  Company Number: CA-ROCHE-1321590

PATIENT
  Age: 68 Year
  Sex: Male

DRUGS (4)
  1. RITUXAN [Suspect]
     Indication: IMMUNE THROMBOCYTOPENIC PURPURA
     Route: 042
     Dates: start: 2008
  2. RITUXAN [Suspect]
     Route: 042
     Dates: start: 20140402
  3. RITUXAN [Suspect]
     Route: 042
     Dates: start: 20140409
  4. TELMISARTAN [Concomitant]
     Route: 065
     Dates: start: 2011

REACTIONS (4)
  - Malignant melanoma [Unknown]
  - Platelet count decreased [Unknown]
  - Splenectomy [Unknown]
  - Off label use [Unknown]
